FAERS Safety Report 4846364-6 (Version None)
Quarter: 2005Q4

REPORT INFORMATION
  Report Type: 
  Country: None (occurrence: None)
  Receive Date: 20051115
  Receipt Date: 20051004
  Transmission Date: 20060501
  Serious: Yes (Other)
  Sender: FDA-Public Use
  Company Number: 420121

PATIENT
  Age: 51 Year
  Sex: Male

DRUGS (5)
  1. PEGASYS [Suspect]
     Indication: HEPATITIS C VIRUS
     Dosage: 180 MCG 1 PER WEEK OTHER
     Route: 050
     Dates: start: 20050520, end: 20051005
  2. COPEGUS [Suspect]
     Indication: HEPATITIS C VIRUS
     Dosage: 200 MG 6 PER DAY ORAL
     Route: 048
     Dates: start: 20050520, end: 20051005
  3. INSULIN [Concomitant]
  4. ACCUPRIL (CHINAPRYL) [Concomitant]
  5. VIAGRA [Concomitant]

REACTIONS (2)
  - PLATELET COUNT DECREASED [None]
  - RETINAL HAEMORRHAGE [None]
